FAERS Safety Report 6009284-X (Version None)
Quarter: 2008Q4

REPORT INFORMATION
  Report Type: 
  Country: None (occurrence: None)
  Receive Date: 20081217
  Receipt Date: 20080318
  Transmission Date: 20090506
  Serious: Yes (Other)
  Sender: FDA-Public Use
  Company Number: US-AMGEN-QUU270228

PATIENT
  Sex: Female

DRUGS (5)
  1. ENBREL [Suspect]
     Indication: RHEUMATOID ARTHRITIS
     Route: 058
  2. VICODIN [Concomitant]
  3. METHOTREXATE [Concomitant]
  4. IBUPROFEN [Concomitant]
  5. ASPIRIN [Concomitant]

REACTIONS (2)
  - HYPERSENSITIVITY [None]
  - LATEX ALLERGY [None]
